FAERS Safety Report 14128149 (Version 1)
Quarter: 2017Q4

REPORT INFORMATION
  Report Type: Spontaneous
  Country: US (occurrence: None)
  Receive Date: 20171025
  Receipt Date: 20171025
  Transmission Date: 20180321
  Serious: Yes (Life-Threatening)
  Sender: FDA-Public Use
  Company Number: None

PATIENT
  Age: 76 Year
  Sex: Male
  Weight: 81.42 kg

DRUGS (3)
  1. WARFARIN [Suspect]
     Active Substance: WARFARIN
     Indication: ATRIAL FIBRILLATION
     Route: 048
     Dates: start: 20150201, end: 20170720
  2. WARFARIN [Suspect]
     Active Substance: WARFARIN
     Indication: CARDIAC VALVE PROSTHESIS USER
     Route: 048
     Dates: start: 20150201, end: 20170720
  3. ASPIRIN. [Suspect]
     Active Substance: ASPIRIN
     Indication: CARDIOVASCULAR EVENT PROPHYLAXIS
     Route: 048
     Dates: start: 20150319, end: 20170720

REACTIONS (8)
  - Hypotension [None]
  - Diverticulum [None]
  - Rectal haemorrhage [None]
  - Large intestinal ulcer [None]
  - Haemorrhoids [None]
  - Gastric haemorrhage [None]
  - Gastrointestinal haemorrhage [None]
  - Tachycardia [None]

NARRATIVE: CASE EVENT DATE: 20170720
